FAERS Safety Report 6527315-5 (Version None)
Quarter: 2010Q1

REPORT INFORMATION
  Report Type: 
  Country: None (occurrence: None)
  Receive Date: 20100105
  Receipt Date: 20091229
  Transmission Date: 20100710
  Serious: Yes (Hospitalization)
  Sender: FDA-Public Use
  Company Number: GXKR2009IT12861

PATIENT
  Sex: Female

DRUGS (5)
  1. ALPRAZOLAM SANDOZ (NGX) [Suspect]
     Dosage: 2 DF, UNK
     Route: 048
     Dates: start: 20091018, end: 20091020
  2. CITALOPRAM HYDROBROMIDE [Suspect]
     Dosage: 6 DRP, UNK
     Route: 048
     Dates: start: 20091018, end: 20091020
  3. SERENASE [Suspect]
     Dosage: 10 DRP, UNK
     Route: 048
     Dates: start: 20091018, end: 20091020
  4. SOLDESAM [Concomitant]
     Dosage: 8 MG/ML, UNK
     Route: 030
  5. LEVOTIROXINA [Concomitant]
     Indication: HYPOTHYROIDISM
     Dosage: 175 UG, Q48H
     Route: 065

REACTIONS (2)
  - DYSARTHRIA [None]
  - FACIAL PALSY [None]
